FAERS Safety Report 6994334-4 (Version None)
Quarter: 2010Q3

REPORT INFORMATION
  Report Type: 
  Country: None (occurrence: None)
  Receive Date: 20100917
  Receipt Date: 20100914
  Transmission Date: 20110219
  Serious: No
  Sender: FDA-Public Use
  Company Number: US-PFIZER INC-2010116369

PATIENT
  Sex: Male
  Weight: 118.1 kg

DRUGS (1)
  1. ATGAM [Suspect]
     Indication: ACUTE MYELOID LEUKAEMIA
     Dosage: UNK
     Dates: start: 20100912, end: 20100912

REACTIONS (1)
  - ADVERSE DRUG REACTION [None]
